FAERS Safety Report 20492267 (Version 1)
Quarter: 2022Q1

REPORT INFORMATION
  Report Type: Spontaneous
  Country: US (occurrence: US)
  Receive Date: 20220218
  Receipt Date: 20220218
  Transmission Date: 20220423
  Serious: Yes (Hospitalization, Other)
  Sender: FDA-Public Use
  Company Number: US-AMGEN-USASP2022027950

PATIENT
  Age: 56 Year
  Sex: Female

DRUGS (1)
  1. OTEZLA [Suspect]
     Active Substance: APREMILAST
     Indication: Psoriatic arthropathy
     Dosage: 30 MILLIGRAM, BID
     Route: 048
     Dates: start: 202201

REACTIONS (5)
  - Nephrolithiasis [Unknown]
  - Kidney infection [Unknown]
  - Pneumonia [Unknown]
  - Sepsis [Unknown]
  - Depression [Unknown]

NARRATIVE: CASE EVENT DATE: 20220204
